FAERS Safety Report 12213500 (Version 1)
Quarter: 2016Q1

REPORT INFORMATION
  Report Type: Spontaneous
  Country: US (occurrence: None)
  Receive Date: 20160325
  Receipt Date: 20160325
  Transmission Date: 20160526
  Serious: No
  Sender: FDA-Public Use
  Company Number: None

PATIENT
  Age: 64 Year
  Sex: Female
  Weight: 83.92 kg

DRUGS (1)
  1. TEMAZEPAM CAP, 15 MG GG [Suspect]
     Active Substance: TEMAZEPAM
     Indication: SLEEP DISORDER
     Dosage: 30 CAPSULE(S) AT BEDTIME TAKEN BY MOUTH
     Route: 048
     Dates: start: 20160311, end: 20160322

REACTIONS (3)
  - Thirst [None]
  - Dysgeusia [None]
  - Dry mouth [None]

NARRATIVE: CASE EVENT DATE: 20160322
